FAERS Safety Report 12204264 (Version 1)
Quarter: 2016Q1

REPORT INFORMATION
  Report Type: Spontaneous
  Country: US (occurrence: US)
  Receive Date: 20160323
  Receipt Date: 20160323
  Transmission Date: 20160526
  Serious: Yes (Hospitalization, Other)
  Sender: FDA-Public Use
  Company Number: US-MDT-ADR-2016-00471

PATIENT
  Age: 56 Year
  Sex: Male

DRUGS (3)
  1. ORAL SPASTICITY MEDS [Suspect]
     Active Substance: UNSPECIFIED INGREDIENT
     Route: 048
  2. LIORESAL [Suspect]
     Active Substance: BACLOFEN
     Dosage: 777.5MCG/DAY
     Route: 037
  3. LIORESAL [Suspect]
     Active Substance: BACLOFEN
     Dosage: 500MCG/DAY AND A NIGHT BOLUS
     Route: 037

REACTIONS (2)
  - Drug withdrawal syndrome [None]
  - Muscle spasticity [None]
